FAERS Safety Report 5664624-6 (Version None)
Quarter: 2008Q1

REPORT INFORMATION
  Report Type: 
  Country: None (occurrence: None)
  Receive Date: 20080314
  Receipt Date: 20080303
  Transmission Date: 20080703
  Serious: Yes (Other)
  Sender: FDA-Public Use
  Company Number: US-BAYER-200810927BCC

PATIENT

DRUGS (1)
  1. ALEVE [Suspect]
     Indication: ARTHRITIS

REACTIONS (1)
  - GASTRITIS [None]
